FAERS Safety Report 9072414 (Version 1)
Quarter: 2013Q1

REPORT INFORMATION
  Report Type: Spontaneous
  Country: FR (occurrence: FR)
  Receive Date: 20130129
  Receipt Date: 20130129
  Transmission Date: 20140127
  Serious: Yes (Death, Life-Threatening)
  Sender: FDA-Public Use
  Company Number: FR-BAYER-2013-009493

PATIENT
  Age: 56 Year
  Sex: Male
  Weight: 77 kg

DRUGS (2)
  1. NEXAVAR [Suspect]
     Indication: HEPATOCELLULAR CARCINOMA
     Dosage: UNK
     Route: 048
     Dates: start: 20121119, end: 201212
  2. ANTITHROMBOTIC AGENTS [Concomitant]
     Indication: VENOUS THROMBOSIS

REACTIONS (1)
  - Mesenteric vein thrombosis [Fatal]
